FAERS Safety Report 20735694 (Version 5)
Quarter: 2023Q2

REPORT INFORMATION
  Report Type: Report from Study
  Country: US (occurrence: US)
  Receive Date: 20220421
  Receipt Date: 20230612
  Transmission Date: 20230721
  Serious: Yes (Hospitalization, Other)
  Sender: FDA-Public Use
  Company Number: US-NOVARTISTESTPH-NVSC2022US092609

PATIENT
  Age: 56 Year
  Sex: Male

DRUGS (1)
  1. COSENTYX [Suspect]
     Active Substance: SECUKINUMAB
     Indication: Product used for unknown indication
     Dosage: UNK
     Route: 065

REACTIONS (6)
  - Pancreatitis acute [Unknown]
  - Infection [Unknown]
  - Altered state of consciousness [Unknown]
  - Psoriatic arthropathy [Unknown]
  - Mobility decreased [Unknown]
  - Renal abscess [Recovering/Resolving]

NARRATIVE: CASE EVENT DATE: 20230410
